FAERS Safety Report 12862364 (Version 1)
Quarter: 2016Q4

REPORT INFORMATION
  Report Type: Spontaneous
  Country: US (occurrence: US)
  Receive Date: 20161019
  Receipt Date: 20161019
  Transmission Date: 20170207
  Serious: Yes (Hospitalization, Other)
  Sender: FDA-Public Use
  Company Number: US-TEVA-704735USA

PATIENT
  Age: 42 Year
  Sex: Female

DRUGS (9)
  1. METOPROLOL. [Concomitant]
     Active Substance: METOPROLOL
     Route: 065
  2. SILDENAFIL. [Concomitant]
     Active Substance: SILDENAFIL
     Route: 065
  3. MULTIVITAMIN [Concomitant]
     Active Substance: VITAMINS
     Route: 065
  4. PROMACTA [Concomitant]
     Active Substance: ELTROMBOPAG OLAMINE
     Route: 065
  5. COPAXONE [Suspect]
     Active Substance: GLATIRAMER ACETATE
     Indication: MULTIPLE SCLEROSIS
     Route: 058
  6. MYCOPHENOLIC ACID. [Concomitant]
     Active Substance: MYCOPHENOLIC ACID
     Route: 065
  7. COZAAR [Concomitant]
     Active Substance: LOSARTAN POTASSIUM
     Route: 065
  8. LASIX [Concomitant]
     Active Substance: FUROSEMIDE
     Route: 065
  9. FONDAPARINUX [Concomitant]
     Active Substance: FONDAPARINUX
     Route: 065

REACTIONS (3)
  - Drug dose omission [Unknown]
  - Panniculitis [Unknown]
  - Cardiac disorder [Unknown]

NARRATIVE: CASE EVENT DATE: 20160925
